FAERS Safety Report 17130890 (Version 10)
Quarter: 2025Q3

REPORT INFORMATION
  Report Type: Spontaneous
  Country: US (occurrence: US)
  Receive Date: 20191209
  Receipt Date: 20250828
  Transmission Date: 20251020
  Serious: Yes (Other)
  Sender: PFIZER
  Company Number: US-PFIZER INC-2019527089

PATIENT
  Age: 7 Year
  Sex: Male
  Weight: 46.2 kg

DRUGS (4)
  1. BENEFIX [Suspect]
     Active Substance: COAGULATION FACTOR IX RECOMBINANT HUMAN\ISOPROPYL ALCOHOL
     Indication: Haemorrhage
     Dosage: 70 UNITS/KG
     Route: 042
  2. BENEFIX [Suspect]
     Active Substance: COAGULATION FACTOR IX RECOMBINANT HUMAN\ISOPROPYL ALCOHOL
     Route: 042
  3. BENEFIX [Suspect]
     Active Substance: COAGULATION FACTOR IX RECOMBINANT HUMAN\ISOPROPYL ALCOHOL
     Dosage: 110 UNIT/KG, EVERY OTHER DAY
     Dates: start: 20221116, end: 20221124
  4. BENEFIX [Suspect]
     Active Substance: COAGULATION FACTOR IX RECOMBINANT HUMAN\ISOPROPYL ALCOHOL

REACTIONS (5)
  - Haemorrhage [Unknown]
  - Haemarthrosis [Unknown]
  - Limb injury [Unknown]
  - Product dispensing error [Unknown]
  - Intentional product misuse [Unknown]

NARRATIVE: CASE EVENT DATE: 20190101
